FAERS Safety Report 8826460 (Version 1)
Quarter: 2012Q4

REPORT INFORMATION
  Report Type: 
  Country: US (occurrence: US)
  Receive Date: 20121005
  Receipt Date: 20121005
  Transmission Date: 20130627
  Serious: Yes (Other)
  Sender: FDA-Public Use
  Company Number: US-PFIZER INC-2012205696

PATIENT
  Age: 50 Year
  Sex: Female

DRUGS (3)
  1. ENBREL [Suspect]
     Indication: RHEUMATOID ARTHRITIS
     Dosage: 50 mg, qwk
     Dates: start: 20060101
  2. METHOTREXATE SODIUM [Suspect]
     Dosage: UNK
  3. KLONOPIN [Concomitant]
     Dosage: UNK

REACTIONS (9)
  - Bedridden [Recovered/Resolved]
  - Rheumatoid arthritis [Recovered/Resolved]
  - Vessel puncture site bruise [Recovered/Resolved]
  - Upper limb fracture [Not Recovered/Not Resolved]
  - Joint contracture [Not Recovered/Not Resolved]
  - Blood glucose decreased [Recovered/Resolved]
  - Insomnia [Not Recovered/Not Resolved]
  - Therapeutic response decreased [Not Recovered/Not Resolved]
  - Alanine aminotransferase increased [Not Recovered/Not Resolved]
